FAERS Safety Report 8549755 (Version 3)
Quarter: 2015Q4

REPORT INFORMATION
  Report Type: Spontaneous
  Country: US (occurrence: US)
  Receive Date: 20120507
  Receipt Date: 20151126
  Transmission Date: 20160305
  Serious: Yes (Other)
  Sender: FDA-Public Use
  Company Number: US-ASTRAZENECA-2012SE28034

PATIENT
  Age: 31237 Day
  Sex: Female
  Weight: 54.4 kg

DRUGS (5)
  1. SYMBICORT [Suspect]
     Active Substance: BUDESONIDE\FORMOTEROL FUMARATE DIHYDRATE
     Indication: CHRONIC OBSTRUCTIVE PULMONARY DISEASE
     Dosage: 160/4.5 MCG, ONE INHALATION TWO TIMES A DAY
     Route: 055
  2. SYMBICORT [Suspect]
     Active Substance: BUDESONIDE\FORMOTEROL FUMARATE DIHYDRATE
     Indication: ASTHMA
     Dosage: 160/4.5 MCG, ONE INHALATION TWO TIMES A DAY
     Route: 055
  3. SYMBICORT [Suspect]
     Active Substance: BUDESONIDE\FORMOTEROL FUMARATE DIHYDRATE
     Indication: ASTHMA
     Dosage: 160/4.5 MCG, ONE PUFF IN AM AND ONE PUFF IN PM
     Route: 055
     Dates: start: 2009, end: 20120908
  4. PROAIR HFA [Concomitant]
     Active Substance: ALBUTEROL SULFATE
     Indication: ASTHMA
     Dosage: DAILY
     Route: 055
  5. SYMBICORT [Suspect]
     Active Substance: BUDESONIDE\FORMOTEROL FUMARATE DIHYDRATE
     Indication: CHRONIC OBSTRUCTIVE PULMONARY DISEASE
     Dosage: 160/4.5 MCG, ONE PUFF IN AM AND ONE PUFF IN PM
     Route: 055
     Dates: start: 2009, end: 20120908

REACTIONS (7)
  - Ear infection [Recovered/Resolved]
  - Wrist fracture [Unknown]
  - Malaise [Unknown]
  - Off label use [Not Recovered/Not Resolved]
  - Sinusitis [Unknown]
  - Drug dose omission [Unknown]
  - Colitis ulcerative [Not Recovered/Not Resolved]

NARRATIVE: CASE EVENT DATE: 20120908
